FAERS Safety Report 23331084 (Version 1)
Quarter: 2023Q4

REPORT INFORMATION
  Report Type: Spontaneous
  Country: US (occurrence: US)
  Receive Date: 20231222
  Receipt Date: 20231222
  Transmission Date: 20240109
  Serious: No
  Sender: FDA-Public Use
  Company Number: US-BAYER-2023A180857

PATIENT
  Age: 63 Year
  Sex: Female

DRUGS (2)
  1. CIPRO [Suspect]
     Active Substance: CIPROFLOXACIN HYDROCHLORIDE
  2. TYMLOS [Concomitant]
     Active Substance: ABALOPARATIDE
     Indication: Senile osteoporosis
     Dosage: UNK
     Route: 058
     Dates: start: 202305

REACTIONS (1)
  - Drug hypersensitivity [None]
